FAERS Safety Report 10474744 (Version 2)
Quarter: 2014Q3

REPORT INFORMATION
  Report Type: Spontaneous
  Country: US (occurrence: US)
  Receive Date: 20140925
  Receipt Date: 20140925
  Transmission Date: 20150326
  Serious: No
  Sender: FDA-Public Use
  Company Number: US-TEVA-421407USA

PATIENT
  Age: 14 Year

DRUGS (1)
  1. AMIKACIN [Suspect]
     Active Substance: AMIKACIN
     Indication: OPTIC NERVE DISORDER

REACTIONS (1)
  - Incorrect route of drug administration [Unknown]
